FAERS Safety Report 25193920 (Version 2)
Quarter: 2025Q2

REPORT INFORMATION
  Report Type: Report from Study
  Country: CA (occurrence: CA)
  Receive Date: 20250414
  Receipt Date: 20250425
  Transmission Date: 20250717
  Serious: Yes (Other)
  Sender: ABBVIE
  Company Number: CA-ABBVIE-6222485

PATIENT
  Age: 62 Year
  Sex: Male

DRUGS (2)
  1. RINVOQ [Suspect]
     Active Substance: UPADACITINIB
     Indication: Rheumatoid arthritis
     Dosage: DOSE STRENGTH:15 MG
     Route: 048
     Dates: start: 20230911, end: 202504
  2. RINVOQ [Suspect]
     Active Substance: UPADACITINIB
     Indication: Rheumatoid arthritis
     Dosage: DOSE STRENGTH:15 MG
     Route: 048
     Dates: start: 202504

REACTIONS (1)
  - Prostatectomy [Recovered/Resolved]

NARRATIVE: CASE EVENT DATE: 20250401
